FAERS Safety Report 8174159-7 (Version None)
Quarter: 2012Q1

REPORT INFORMATION
  Report Type: 
  Country: None (occurrence: None)
  Receive Date: 20120229
  Receipt Date: 20120215
  Transmission Date: 20120608
  Serious: Yes (Hospitalization)
  Sender: FDA-Public Use
  Company Number: US-ROCHE-1015997

PATIENT
  Sex: Female

DRUGS (3)
  1. PEGINTERFERON ALFA-2A [Suspect]
     Indication: HEPATITIS C
     Route: 058
     Dates: start: 20111006
  2. TELAPREVIR [Suspect]
     Indication: HEPATITIS C
     Dates: start: 20111006
  3. COPEGUS [Suspect]
     Indication: HEPATITIS C
     Route: 048
     Dates: start: 20111006

REACTIONS (9)
  - VOMITING [None]
  - DECREASED APPETITE [None]
  - BLOOD PRESSURE INCREASED [None]
  - WEIGHT DECREASED [None]
  - DEPRESSED MOOD [None]
  - NAUSEA [None]
  - DYSGEUSIA [None]
  - HYPONATRAEMIA [None]
  - TREMOR [None]
